FAERS Safety Report 13152239 (Version 2)
Quarter: 2017Q1

REPORT INFORMATION
  Report Type: Spontaneous
  Country: JP (occurrence: JP)
  Receive Date: 20170125
  Receipt Date: 20170216
  Transmission Date: 20170428
  Serious: Yes (Disabling, Other)
  Sender: FDA-Public Use
  Company Number: JP-PFIZER INC-2017031656

PATIENT
  Age: 70 Year
  Sex: Female

DRUGS (8)
  1. LIORESAL [Concomitant]
     Active Substance: BACLOFEN
     Dosage: 5 MG, 3X/DAY, FROM 5MG TO 10MG
     Route: 048
     Dates: start: 20141017
  2. METHYCOBAL [Concomitant]
     Active Substance: METHYLCOBALAMIN
     Dosage: 500 UG, 3X/DAY
     Route: 048
     Dates: start: 20150202
  3. LYRICA [Suspect]
     Active Substance: PREGABALIN
     Dosage: 150 MG, DAILY
     Route: 048
     Dates: start: 20141002
  4. LYRICA [Suspect]
     Active Substance: PREGABALIN
     Dosage: 150 MG, 2X/DAY
     Route: 048
     Dates: start: 20150313
  5. RIVOTRIL [Concomitant]
     Active Substance: CLONAZEPAM
     Dosage: 0.5 MG, DAILY
     Route: 048
     Dates: start: 20141002
  6. LYRICA [Suspect]
     Active Substance: PREGABALIN
     Indication: PAIN
     Dosage: 150 MG, DAILY
     Route: 048
     Dates: start: 20140917
  7. ANAFRANIL [Concomitant]
     Active Substance: CLOMIPRAMINE HYDROCHLORIDE
     Indication: DEPRESSION
     Dosage: 25 MG, DAILY
     Route: 048
  8. LYRICA [Suspect]
     Active Substance: PREGABALIN
     Dosage: 75 MG, 2X/DAY
     Route: 048
     Dates: start: 20160718, end: 20160805

REACTIONS (7)
  - Fall [Unknown]
  - Road traffic accident [Recovered/Resolved]
  - Fall [Unknown]
  - Spinal compression fracture [Recovered/Resolved with Sequelae]
  - Loss of consciousness [Recovered/Resolved]
  - Wrist fracture [Unknown]
  - Somnolence [Recovered/Resolved]

NARRATIVE: CASE EVENT DATE: 20150909
